FAERS Safety Report 5930106-7 (Version None)
Quarter: 2008Q4

REPORT INFORMATION
  Report Type: 
  Country: None (occurrence: None)
  Receive Date: 20081024
  Receipt Date: 20081020
  Transmission Date: 20090506
  Serious: No
  Sender: FDA-Public Use
  Company Number: US-B.I. PHARMACEUTICALS,INC./RIDGEFIELD-2008-BP-14807BP

PATIENT
  Age: 91 Year
  Sex: Male

DRUGS (8)
  1. FLOMAX [Suspect]
     Indication: NOCTURIA
     Dosage: .4MG
     Route: 048
     Dates: start: 20080101, end: 20080101
  2. COUMADIN [Concomitant]
  3. METOPROLOL TARTRATE [Concomitant]
  4. FUROSEMIDE [Concomitant]
  5. ACTONEL [Concomitant]
  6. TUMS [Concomitant]
  7. COLACE [Concomitant]
  8. TESTOSTERONE INJECTIONS [Concomitant]

REACTIONS (2)
  - NOCTURIA [None]
  - URINARY INCONTINENCE [None]
